FAERS Safety Report 15421507 (Version 1)
Quarter: 2018Q3

REPORT INFORMATION
  Report Type: Spontaneous
  Country: US (occurrence: US)
  Receive Date: 20180924
  Receipt Date: 20180924
  Transmission Date: 20181010
  Serious: No
  Sender: FDA-Public Use
  Company Number: US-ALLERGAN-1825672US

PATIENT
  Age: 59 Year
  Sex: Female
  Weight: 77.98 kg

DRUGS (2)
  1. LINZESS [Suspect]
     Active Substance: LINACLOTIDE
     Indication: CONSTIPATION
     Dosage: 145 ?G, QD
     Route: 048
  2. LINZESS [Suspect]
     Active Substance: LINACLOTIDE
     Dosage: 72 ?G, QD
     Route: 065

REACTIONS (4)
  - Diarrhoea [Recovered/Resolved]
  - Bowel movement irregularity [Recovered/Resolved]
  - Abnormal faeces [Recovered/Resolved]
  - Inappropriate schedule of drug administration [Unknown]
